FAERS Safety Report 20813401 (Version 1)
Quarter: 2022Q2

REPORT INFORMATION
  Report Type: Spontaneous
  Country: US (occurrence: US)
  Receive Date: 20220511
  Receipt Date: 20220511
  Transmission Date: 20220720
  Serious: No
  Sender: FDA-Public Use
  Company Number: US-BRISTOL-MYERS SQUIBB COMPANY-2022-035542

PATIENT
  Sex: Female

DRUGS (1)
  1. REVLIMID [Suspect]
     Active Substance: LENALIDOMIDE
     Indication: Plasma cell myeloma
     Dosage: TAKE ONE CAPSULE (10MG TOTAL) BY MOUTH DAILY FOR 21 DAYS OF 28 DAY CYCLE.
     Route: 048
     Dates: start: 20210716

REACTIONS (2)
  - Herpes zoster [Unknown]
  - Product dose omission issue [Unknown]
